FAERS Safety Report 17716175 (Version 1)
Quarter: 2020Q2

REPORT INFORMATION
  Report Type: Spontaneous
  Country: US (occurrence: US)
  Receive Date: 20200428
  Receipt Date: 20200428
  Transmission Date: 20200714
  Serious: No
  Sender: FDA-Public Use
  Company Number: US-SENTYNL THERAPEUTICS, INC.  -2083196

PATIENT
  Age: 62 Year
  Sex: Female

DRUGS (2)
  1. LEVORPHANOL TARTRATE. [Suspect]
     Active Substance: LEVORPHANOL TARTRATE
     Indication: MIGRAINE
     Route: 048
     Dates: start: 20200225, end: 20200226
  2. CEFDINIR. [Concomitant]
     Active Substance: CEFDINIR

REACTIONS (2)
  - Paraesthesia [Not Recovered/Not Resolved]
  - Erythema [Not Recovered/Not Resolved]

NARRATIVE: CASE EVENT DATE: 20200226
